FAERS Safety Report 19863844 (Version 1)
Quarter: 2021Q3

REPORT INFORMATION
  Report Type: Other
  Country: ES (occurrence: ES)
  Receive Date: 20210922
  Receipt Date: 20210922
  Transmission Date: 20211014
  Serious: Yes (Hospitalization, Other)
  Sender: FDA-Public Use
  Company Number: ES-CELLTRION INC.-2021ES012667

PATIENT

DRUGS (23)
  1. VENCLYXTO [Suspect]
     Active Substance: VENETOCLAX
     Dosage: 400 MG, EVERY 24 HOURS
     Route: 048
     Dates: start: 20200616, end: 20210520
  2. OMEPRAZOLE. [Concomitant]
     Active Substance: OMEPRAZOLE
     Indication: PRODUCT USED FOR UNKNOWN INDICATION
  3. FOLIC ACID. [Concomitant]
     Active Substance: FOLIC ACID
     Indication: PROPHYLAXIS
  4. ACICLOVIR [Concomitant]
     Active Substance: ACYCLOVIR
     Indication: PROPHYLAXIS
  5. GRANULOCYTE COLONY STIMULATING FACTOR [Concomitant]
     Active Substance: GRANULOCYTE COLONY-STIMULATING FACTOR NOS
     Indication: PROPHYLAXIS
  6. DEMILOS [Concomitant]
     Active Substance: CALCIUM CARBONATE\CHOLECALCIFEROL
     Indication: PRODUCT USED FOR UNKNOWN INDICATION
  7. VENCLYXTO [Suspect]
     Active Substance: VENETOCLAX
     Dosage: 100 MG, EVERY 1 DAY
     Route: 048
     Dates: start: 2021
  8. VENCLYXTO [Suspect]
     Active Substance: VENETOCLAX
     Dosage: 20 MG, EVERY 1 DAY
     Route: 048
     Dates: start: 20210629, end: 2021
  9. GEMFIBROZIL. [Concomitant]
     Active Substance: GEMFIBROZIL
     Indication: PRODUCT USED FOR UNKNOWN INDICATION
  10. ALLOPURINOL. [Concomitant]
     Active Substance: ALLOPURINOL
     Indication: PRODUCT USED FOR UNKNOWN INDICATION
  11. OMACOR [Concomitant]
     Active Substance: OMEGA-3-ACID ETHYL ESTERS
     Indication: PRODUCT USED FOR UNKNOWN INDICATION
  12. VENCLYXTO [Suspect]
     Active Substance: VENETOCLAX
     Dosage: 400 MG, EVERY 24 HOURS
     Route: 048
     Dates: start: 20200616, end: 20210520
  13. GLIMEPIRIDE. [Concomitant]
     Active Substance: GLIMEPIRIDE
     Indication: PRODUCT USED FOR UNKNOWN INDICATION
  14. VENCLYXTO [Suspect]
     Active Substance: VENETOCLAX
     Dosage: 20 MG, EVERY 1 DAY
     Route: 048
     Dates: start: 20210629, end: 2021
  15. VENCLYXTO [Suspect]
     Active Substance: VENETOCLAX
     Dosage: 20 MG, EVERY 1 DAY
     Route: 048
     Dates: start: 20210629, end: 2021
  16. VENCLYXTO [Suspect]
     Active Substance: VENETOCLAX
     Dosage: 100 MG, EVERY 1 DAY
     Route: 048
     Dates: start: 2021
  17. VENCLYXTO [Suspect]
     Active Substance: VENETOCLAX
     Indication: CHRONIC LYMPHOCYTIC LEUKAEMIA
     Dosage: 400 MG, EVERY 24 HOURS
     Route: 048
     Dates: start: 20200616, end: 20210520
  18. RITUXIMAB. [Suspect]
     Active Substance: RITUXIMAB
     Indication: CHRONIC LYMPHOCYTIC LEUKAEMIA
     Route: 065
  19. SEPTRIN [Concomitant]
     Active Substance: SULFAMETHOXAZOLE\TRIMETHOPRIM
     Indication: PROPHYLAXIS
  20. PREDNISONE. [Concomitant]
     Active Substance: PREDNISONE
     Indication: PRODUCT USED FOR UNKNOWN INDICATION
     Dosage: 10 MG, EVERY 1 DAY
  21. VENCLYXTO [Suspect]
     Active Substance: VENETOCLAX
     Dosage: 100 MG, EVERY 1 DAY
     Route: 048
     Dates: start: 2021
  22. METFORMIN [Concomitant]
     Active Substance: METFORMIN HYDROCHLORIDE
     Indication: PRODUCT USED FOR UNKNOWN INDICATION
  23. ELIGARD [Concomitant]
     Active Substance: LEUPROLIDE ACETATE
     Indication: PRODUCT USED FOR UNKNOWN INDICATION
     Dosage: (DOSE: 2), PER 1 YEAR

REACTIONS (3)
  - Anaemia [Recovered/Resolved]
  - Splenomegaly [Unknown]
  - Lymphadenopathy [Unknown]

NARRATIVE: CASE EVENT DATE: 20210505
